FAERS Safety Report 24884920 (Version 3)
Quarter: 2025Q2

REPORT INFORMATION
  Report Type: Spontaneous
  Country: US (occurrence: US)
  Receive Date: 20250124
  Receipt Date: 20250410
  Transmission Date: 20250717
  Serious: No
  Sender: SANOFI AVENTIS
  Company Number: US-SA-2025SA022327

PATIENT
  Age: 17 Year
  Sex: Male
  Weight: 61.23 kg

DRUGS (8)
  1. DUPIXENT [Suspect]
     Active Substance: DUPILUMAB
     Indication: Eosinophilic oesophagitis
     Dosage: 300 MG, QW
     Route: 058
     Dates: start: 202404
  2. DUPIXENT [Suspect]
     Active Substance: DUPILUMAB
     Indication: Asthma
  3. DUPIXENT [Suspect]
     Active Substance: DUPILUMAB
     Indication: Dermatitis
  4. ACCUTANE [Concomitant]
     Active Substance: ISOTRETINOIN
  5. VITAMINS [Concomitant]
     Active Substance: VITAMINS
  6. EPINEPHRINE [Concomitant]
     Active Substance: EPINEPHRINE
  7. OFLOXACIN [Concomitant]
     Active Substance: OFLOXACIN
  8. CYPROHEPTADINE HYDROCHLORIDE [Concomitant]
     Active Substance: CYPROHEPTADINE HYDROCHLORIDE

REACTIONS (12)
  - COVID-19 [Recovering/Resolving]
  - Eye inflammation [Recovering/Resolving]
  - Ocular hyperaemia [Recovering/Resolving]
  - Eye swelling [Recovering/Resolving]
  - Visual impairment [Recovering/Resolving]
  - Conjunctivitis [Not Recovered/Not Resolved]
  - Ocular hyperaemia [Not Recovered/Not Resolved]
  - Eye swelling [Not Recovered/Not Resolved]
  - Eye discharge [Not Recovered/Not Resolved]
  - Vision blurred [Not Recovered/Not Resolved]
  - Product use in unapproved indication [Unknown]
  - Therapeutic response decreased [Not Recovered/Not Resolved]

NARRATIVE: CASE EVENT DATE: 20240101
